FAERS Safety Report 8024328-1 (Version None)
Quarter: 2011Q4

REPORT INFORMATION
  Report Type: 
  Country: None (occurrence: None)
  Receive Date: 20111130
  Receipt Date: 20110830
  Transmission Date: 20120403
  Serious: Yes (Other)
  Sender: FDA-Public Use
  Company Number: 334308

PATIENT
  Age: 13 Year
  Sex: Male
  Weight: 81.6475 kg

DRUGS (9)
  1. NOVOLOG [Suspect]
     Indication: TYPE 1 DIABETES MELLITUS
     Dosage: 50 IU, QD, SUBCUTAN.-PUMP UNKNOWN, SUBCUTAN.-PUMP
     Route: 058
     Dates: start: 20100101, end: 20110801
  2. NOVOLOG [Suspect]
     Indication: TYPE 1 DIABETES MELLITUS
     Dosage: 50 IU, QD, SUBCUTAN.-PUMP UNKNOWN, SUBCUTAN.-PUMP
     Route: 058
     Dates: start: 20110801, end: 20110801
  3. NOVOLOG [Suspect]
     Indication: TYPE 1 DIABETES MELLITUS
     Dosage: 50 IU, QD, SUBCUTAN.-PUMP UNKNOWN, SUBCUTAN.-PUMP
     Route: 058
     Dates: start: 20110827
  4. NOVOLOG [Suspect]
     Indication: TYPE 1 DIABETES MELLITUS
     Dosage: 50 IU, QD, SUBCUTAN.-PUMP UNKNOWN, SUBCUTAN.-PUMP
     Route: 058
     Dates: start: 20110801, end: 20110801
  5. ABILIFY [Concomitant]
  6. NOVOLOG [Suspect]
  7. NOVOLOG [Suspect]
  8. LAMICTAL [Concomitant]
  9. GEODON /01487002/ (ZIPRASIDONE HYDROCHLORIDE) [Concomitant]

REACTIONS (2)
  - BLOOD GLUCOSE INCREASED [None]
  - DRUG INEFFECTIVE [None]
